FAERS Safety Report 4681038-6 (Version None)
Quarter: 2005Q2

REPORT INFORMATION
  Report Type: 
  Country: None (occurrence: None)
  Receive Date: 20050603
  Receipt Date: 20050526
  Transmission Date: 20051028
  Serious: Yes (Life-Threatening, Hospitalization, Other)
  Sender: FDA-Public Use
  Company Number: US-ABBOTT-05P-163-0301705-00

PATIENT
  Age: 29 Year
  Sex: Female

DRUGS (5)
  1. OMNICEF [Suspect]
     Indication: SINUSITIS
     Route: 048
     Dates: start: 20050505, end: 20050509
  2. OMNICEF [Suspect]
     Indication: PHARYNGITIS
  3. LAMOTRIGINE [Suspect]
     Indication: BIPOLAR DISORDER
     Route: 048
     Dates: start: 20030101, end: 20050501
  4. VENLAFAXINE HCL [Concomitant]
     Indication: BIPOLAR DISORDER
     Route: 048
  5. LAMOTRIGINE [Concomitant]
     Route: 048
     Dates: start: 20030101, end: 20050509

REACTIONS (4)
  - DRUG INTERACTION [None]
  - DYSPNOEA [None]
  - STEVENS-JOHNSON SYNDROME [None]
  - SWELLING FACE [None]
